FAERS Safety Report 5334701-8 (Version None)
Quarter: 2007Q2

REPORT INFORMATION
  Report Type: 
  Country: None (occurrence: None)
  Receive Date: 20070521
  Receipt Date: 20070504
  Transmission Date: 20071010
  Serious: Yes (Other)
  Sender: FDA-Public Use
  Company Number: 2007RR-07468

PATIENT
  Age: 55 Year
  Sex: Female

DRUGS (9)
  1. FENOFIBRATE [Suspect]
     Indication: HYPERTRIGLYCERIDAEMIA
     Dosage: 54 MG, QD
     Dates: start: 20020701
  2. PREDNISONE TAB [Concomitant]
  3. CYCLOSPORINE [Concomitant]
  4. AZATHIOPRINE [Concomitant]
  5. METOPROLOL TARTRATE [Concomitant]
  6. CLONIDINE [Concomitant]
  7. FLUVASTATIN [Concomitant]
  8. AMLODIPINE MALEATE (AMLODIPINE) [Concomitant]
  9. BENAZEPRIL (BENAZEPRIL) [Concomitant]

REACTIONS (1)
  - GRAFT DYSFUNCTION [None]
